FAERS Safety Report 20992025 (Version 4)
Quarter: 2022Q3

REPORT INFORMATION
  Report Type: Report from Study
  Country: CL (occurrence: CL)
  Receive Date: 20220622
  Receipt Date: 20220826
  Transmission Date: 20221027
  Serious: Yes (Other)
  Sender: FDA-Public Use
  Company Number: CL-NOVARTISPH-NVSC2022CL054127

PATIENT
  Age: 41 Year
  Sex: Female

DRUGS (3)
  1. KISQALI [Suspect]
     Active Substance: RIBOCICLIB
     Indication: Breast cancer
     Dosage: 600 MG, QD (VIA MOUTH)
     Route: 048
     Dates: start: 20220205
  2. KISQALI [Suspect]
     Active Substance: RIBOCICLIB
     Dosage: UNK
     Route: 065
     Dates: start: 20220604, end: 20220624
  3. FULVESTRANT [Suspect]
     Active Substance: FULVESTRANT
     Indication: Product used for unknown indication
     Dosage: UNK
     Route: 065

REACTIONS (12)
  - Pulmonary mass [Unknown]
  - White blood cell count decreased [Unknown]
  - Neoplasm [Unknown]
  - Blood alkaline phosphatase increased [Unknown]
  - Blood potassium increased [Unknown]
  - Decreased immune responsiveness [Unknown]
  - Red cell distribution width increased [Unknown]
  - Anisocytosis [Unknown]
  - Elliptocytosis [Unknown]
  - Memory impairment [Unknown]
  - Neutrophil count decreased [Unknown]
  - Lymphocyte count decreased [Unknown]

NARRATIVE: CASE EVENT DATE: 20220302
